FAERS Safety Report 20468915 (Version 1)
Quarter: 2022Q1

REPORT INFORMATION
  Report Type: Spontaneous
  Country: US (occurrence: US)
  Receive Date: 20220214
  Receipt Date: 20220214
  Transmission Date: 20220424
  Serious: Yes (Other)
  Sender: FDA-Public Use
  Company Number: US-GLAXOSMITHKLINE-US2022GSK022325

PATIENT
  Sex: Female

DRUGS (36)
  1. ZANTAC [Suspect]
     Active Substance: RANITIDINE HYDROCHLORIDE
     Indication: Dyspepsia
     Dosage: UNKNOWN AT THIS TIME, OCCASIONAL
     Route: 065
     Dates: start: 201601, end: 202106
  2. ZANTAC [Suspect]
     Active Substance: RANITIDINE HYDROCHLORIDE
     Indication: Dyspepsia
  3. ZANTAC [Suspect]
     Active Substance: RANITIDINE HYDROCHLORIDE
     Indication: Gastrooesophageal reflux disease
  4. ZANTAC [Suspect]
     Active Substance: RANITIDINE HYDROCHLORIDE
     Indication: Sciatic nerve injury
  5. ZANTAC [Suspect]
     Active Substance: RANITIDINE HYDROCHLORIDE
     Indication: Thyroid cancer
  6. ZANTAC [Suspect]
     Active Substance: RANITIDINE HYDROCHLORIDE
     Indication: Dental caries
  7. ZANTAC [Suspect]
     Active Substance: RANITIDINE HYDROCHLORIDE
     Indication: Breast cancer
  8. ZANTAC [Suspect]
     Active Substance: RANITIDINE HYDROCHLORIDE
     Indication: Exposure to radiation
  9. ZANTAC [Suspect]
     Active Substance: RANITIDINE HYDROCHLORIDE
     Indication: Thyroid cancer
  10. ZANTAC [Suspect]
     Active Substance: RANITIDINE HYDROCHLORIDE
     Indication: Dyspepsia
     Dosage: UNKNOWN AT THIS TIME, OCCASIONAL
     Route: 065
     Dates: start: 201601, end: 202106
  11. ZANTAC [Suspect]
     Active Substance: RANITIDINE HYDROCHLORIDE
     Indication: Dyspepsia
  12. ZANTAC [Suspect]
     Active Substance: RANITIDINE HYDROCHLORIDE
     Indication: Gastrooesophageal reflux disease
  13. ZANTAC [Suspect]
     Active Substance: RANITIDINE HYDROCHLORIDE
     Indication: Sciatic nerve injury
  14. ZANTAC [Suspect]
     Active Substance: RANITIDINE HYDROCHLORIDE
     Indication: Thyroid cancer
  15. ZANTAC [Suspect]
     Active Substance: RANITIDINE HYDROCHLORIDE
     Indication: Dental caries
  16. ZANTAC [Suspect]
     Active Substance: RANITIDINE HYDROCHLORIDE
     Indication: Breast cancer
  17. ZANTAC [Suspect]
     Active Substance: RANITIDINE HYDROCHLORIDE
     Indication: Exposure to radiation
  18. ZANTAC [Suspect]
     Active Substance: RANITIDINE HYDROCHLORIDE
     Indication: Thyroid cancer
  19. RANITIDINE [Suspect]
     Active Substance: RANITIDINE
     Indication: Dyspepsia
     Dosage: 150 MG, QD
     Route: 065
     Dates: start: 201603, end: 202006
  20. RANITIDINE [Suspect]
     Active Substance: RANITIDINE
     Indication: Dyspepsia
  21. RANITIDINE [Suspect]
     Active Substance: RANITIDINE
     Indication: Gastrooesophageal reflux disease
  22. RANITIDINE [Suspect]
     Active Substance: RANITIDINE
     Indication: Sciatic nerve injury
  23. RANITIDINE [Suspect]
     Active Substance: RANITIDINE
     Indication: Thyroid cancer
  24. RANITIDINE [Suspect]
     Active Substance: RANITIDINE
     Indication: Dental caries
  25. RANITIDINE [Suspect]
     Active Substance: RANITIDINE
     Indication: Breast cancer
  26. RANITIDINE [Suspect]
     Active Substance: RANITIDINE
     Indication: Exposure to radiation
  27. RANITIDINE [Suspect]
     Active Substance: RANITIDINE
     Indication: Thyroid cancer
  28. RANITIDINE [Suspect]
     Active Substance: RANITIDINE
     Indication: Dyspepsia
     Dosage: 150 MG, QD
     Route: 065
     Dates: start: 201603, end: 202006
  29. RANITIDINE [Suspect]
     Active Substance: RANITIDINE
     Indication: Dyspepsia
  30. RANITIDINE [Suspect]
     Active Substance: RANITIDINE
     Indication: Gastrooesophageal reflux disease
  31. RANITIDINE [Suspect]
     Active Substance: RANITIDINE
     Indication: Sciatic nerve injury
  32. RANITIDINE [Suspect]
     Active Substance: RANITIDINE
     Indication: Thyroid cancer
  33. RANITIDINE [Suspect]
     Active Substance: RANITIDINE
     Indication: Dental caries
  34. RANITIDINE [Suspect]
     Active Substance: RANITIDINE
     Indication: Breast cancer
  35. RANITIDINE [Suspect]
     Active Substance: RANITIDINE
     Indication: Exposure to radiation
  36. RANITIDINE [Suspect]
     Active Substance: RANITIDINE
     Indication: Thyroid cancer

REACTIONS (2)
  - Thyroid cancer [Unknown]
  - Benign breast neoplasm [Unknown]
